FAERS Safety Report 9377817 (Version 1)
Quarter: 2013Q3

REPORT INFORMATION
  Report Type: Spontaneous
  Country: FR (occurrence: FR)
  Receive Date: 20130701
  Receipt Date: 20130701
  Transmission Date: 20140515
  Serious: Yes (Other)
  Sender: FDA-Public Use
  Company Number: PHHY2013FR067687

PATIENT
  Age: 18 Year
  Sex: Female

DRUGS (4)
  1. AMOXICILLINE-ACIDE CLAVULANIQUE [Suspect]
     Dosage: 2 G, QD
     Route: 042
     Dates: start: 20130315, end: 20130315
  2. PROPOFOL LIPURO [Suspect]
     Dosage: 180 MG, QD
     Route: 042
     Dates: start: 20130315, end: 20130315
  3. ESMERON [Suspect]
     Dosage: 80 MG, QD
     Route: 042
     Dates: start: 20130315, end: 20130315
  4. SUFENTANIL MERCK [Suspect]
     Dosage: 50 UG, QD
     Route: 042

REACTIONS (3)
  - Tachycardia [Recovered/Resolved]
  - Hypotension [Recovered/Resolved]
  - Rash [Recovered/Resolved]
